FAERS Safety Report 16242249 (Version 3)
Quarter: 2019Q4

REPORT INFORMATION
  Report Type: Spontaneous
  Country: CA (occurrence: CA)
  Receive Date: 20190426
  Receipt Date: 20191009
  Transmission Date: 20200122
  Serious: Yes (Other)
  Sender: FDA-Public Use
  Company Number: CA-TEVA-2019-CA-1041761

PATIENT
  Age: 62 Year
  Sex: Female

DRUGS (18)
  1. RAPAMUNE [Suspect]
     Active Substance: SIROLIMUS
     Dosage: 2 MILLIGRAM DAILY;
     Route: 065
  2. METFORMIN [Concomitant]
     Active Substance: METFORMIN HYDROCHLORIDE
     Indication: PRODUCT USED FOR UNKNOWN INDICATION
     Dosage: 500 MILLIGRAM DAILY;
     Route: 065
  3. MYCOPHENOLATE MOFETIL. [Suspect]
     Active Substance: MYCOPHENOLATE MOFETIL
     Indication: LIVER TRANSPLANT
     Dosage: 1000 MILLIGRAM DAILY;
     Route: 065
  4. HYDROCHLOROTHIAZIDE. [Concomitant]
     Active Substance: HYDROCHLOROTHIAZIDE
     Indication: PRODUCT USED FOR UNKNOWN INDICATION
     Dosage: 12.5 MILLIGRAM DAILY;
     Route: 065
  5. PANTOPRAZOLE [Concomitant]
     Active Substance: PANTOPRAZOLE
     Indication: PRODUCT USED FOR UNKNOWN INDICATION
     Dosage: 40 MILLIGRAM DAILY;
     Route: 065
  6. ATORVASTATIN CALCIUM. [Suspect]
     Active Substance: ATORVASTATIN CALCIUM
     Indication: PRODUCT USED FOR UNKNOWN INDICATION
     Dosage: 30 MILLIGRAM DAILY;
     Route: 065
  7. PREDNISONE. [Suspect]
     Active Substance: PREDNISONE
     Indication: LIVER TRANSPLANT
     Route: 065
  8. TACROLIMUS. [Suspect]
     Active Substance: TACROLIMUS
     Dosage: 8 MILLIEQUIVALENTS DAILY;
     Route: 065
  9. YERVOY [Suspect]
     Active Substance: IPILIMUMAB
     Indication: MALIGNANT MELANOMA
  10. TACROLIMUS. [Suspect]
     Active Substance: TACROLIMUS
     Indication: LIVER TRANSPLANT
     Dosage: 2 MILLIGRAM DAILY;
     Route: 065
  11. IPILIMUMAB [Suspect]
     Active Substance: IPILIMUMAB
     Indication: NEUROFIBROSARCOMA
     Route: 065
  12. ATENOLOL TABLET BP [Concomitant]
     Indication: PRODUCT USED FOR UNKNOWN INDICATION
     Dosage: 50 MILLIGRAM DAILY;
     Route: 065
  13. IRBESARTAN. [Concomitant]
     Active Substance: IRBESARTAN
     Indication: PRODUCT USED FOR UNKNOWN INDICATION
     Dosage: 225 MILLIGRAM DAILY;
     Route: 065
  14. IPILIMUMAB [Suspect]
     Active Substance: IPILIMUMAB
     Indication: MALIGNANT MELANOMA
     Route: 065
  15. YERVOY [Suspect]
     Active Substance: IPILIMUMAB
     Indication: NEUROFIBROSARCOMA
     Route: 065
  16. AMLODIPINE [Concomitant]
     Active Substance: AMLODIPINE BESYLATE
     Indication: PRODUCT USED FOR UNKNOWN INDICATION
     Dosage: 10 MILLIGRAM DAILY;
     Route: 065
  17. ASPIRIN [ACETYLSALICYLIC ACID] [Concomitant]
     Active Substance: ASPIRIN
     Indication: PRODUCT USED FOR UNKNOWN INDICATION
     Dosage: 81 MILLIGRAM DAILY;
     Route: 065
  18. RAPAMUNE [Suspect]
     Active Substance: SIROLIMUS
     Indication: LIVER TRANSPLANT
     Dosage: 1 MILLIGRAM DAILY;
     Route: 065

REACTIONS (5)
  - Malignant melanoma [Recovered/Resolved]
  - Adenocarcinoma [Recovered/Resolved]
  - Neurofibrosarcoma [Recovered/Resolved]
  - Renal impairment [Recovered/Resolved]
  - Fatigue [Recovered/Resolved]
